FAERS Safety Report 7201898-4 (Version None)
Quarter: 2010Q4

REPORT INFORMATION
  Report Type: 
  Country: None (occurrence: None)
  Receive Date: 20101229
  Receipt Date: 20101220
  Transmission Date: 20110411
  Serious: Yes (Other)
  Sender: FDA-Public Use
  Company Number: US-JNJFOC-20100704632

PATIENT
  Sex: Female

DRUGS (5)
  1. LEVAQUIN [Suspect]
     Indication: RESPIRATORY TRACT INFECTION
     Route: 048
  2. LEVAQUIN [Suspect]
     Indication: INFECTION
     Route: 048
  3. LEVAQUIN [Suspect]
     Indication: CHEMOTHERAPY
     Route: 048
  4. PREDNISOLONE [Suspect]
     Indication: RESPIRATORY TRACT INFECTION
     Route: 065
  5. METHYLPREDNISOLONE ACETATE [Suspect]
     Indication: RESPIRATORY TRACT INFECTION
     Route: 065

REACTIONS (7)
  - ARTHRALGIA [None]
  - BURSITIS [None]
  - JOINT INJURY [None]
  - PAIN IN EXTREMITY [None]
  - ROTATOR CUFF SYNDROME [None]
  - TENDONITIS [None]
  - TENOSYNOVITIS STENOSANS [None]
